FAERS Safety Report 18564319 (Version 2)
Quarter: 2020Q4

REPORT INFORMATION
  Report Type: Report from Study
  Country: US (occurrence: US)
  Receive Date: 20201201
  Receipt Date: 20201211
  Transmission Date: 20210114
  Serious: Yes (Hospitalization, Other)
  Sender: FDA-Public Use
  Company Number: US-BAYER-2020-251165

PATIENT
  Age: 45 Year
  Sex: Female

DRUGS (18)
  1. VITAMINS NOS [Concomitant]
     Active Substance: VITAMINS
  2. STIVARGA [Suspect]
     Active Substance: REGORAFENIB
     Indication: COLON CANCER
     Dosage: 40 MG DAILY
     Route: 048
     Dates: start: 20201201
  3. MACROBID [CLARITHROMYCIN] [Concomitant]
     Active Substance: CLARITHROMYCIN
  4. STIVARGA [Suspect]
     Active Substance: REGORAFENIB
     Indication: COLON CANCER
     Dosage: 160 MG DAILY FOR 21 DAYS OF 28 DAYS
     Route: 048
     Dates: start: 20201026, end: 2020
  5. LONSURF [Suspect]
     Active Substance: TIPIRACIL HYDROCHLORIDE\TRIFLURIDINE
     Indication: COLON CANCER
     Dosage: 75 MG, BID
     Route: 048
  6. AMLODIPINE [Concomitant]
     Active Substance: AMLODIPINE BESYLATE
  7. MORPHINE [Concomitant]
     Active Substance: MORPHINE
  8. PANTOPRAZOLE [Concomitant]
     Active Substance: PANTOPRAZOLE
  9. HYDROCODONE BITARTRATE AND ACETAMINOPHEN [Concomitant]
     Active Substance: ACETAMINOPHEN\HYDROCODONE BITARTRATE
  10. MAGNESIUM [Concomitant]
     Active Substance: MAGNESIUM
  11. AUGMENTIN BAMBINI [Concomitant]
     Active Substance: AMOXICILLIN\CLAVULANIC ACID
  12. ONDANSETRON [Concomitant]
     Active Substance: ONDANSETRON
  13. METOCLOPRAMIDE. [Concomitant]
     Active Substance: METOCLOPRAMIDE
  14. ALEVE [Concomitant]
     Active Substance: NAPROXEN SODIUM
  15. NYSTATIN. [Concomitant]
     Active Substance: NYSTATIN
  16. LORAZEPAM. [Concomitant]
     Active Substance: LORAZEPAM
  17. LEVOTHYROXINE. [Concomitant]
     Active Substance: LEVOTHYROXINE
  18. ACETAMINOPHEN;HYDROCODONE [Concomitant]
     Active Substance: ACETAMINOPHEN\HYDROCODONE

REACTIONS (6)
  - Candida infection [None]
  - Urinary bladder haemorrhage [Unknown]
  - Dehydration [None]
  - Blood potassium decreased [None]
  - Thyroid hormones decreased [None]
  - Urinary tract infection [None]

NARRATIVE: CASE EVENT DATE: 20201101
